FAERS Safety Report 10190798 (Version 1)
Quarter: 2014Q2

REPORT INFORMATION
  Report Type: Spontaneous
  Country: AE (occurrence: AE)
  Receive Date: 20140523
  Receipt Date: 20140523
  Transmission Date: 20141212
  Serious: Yes (Hospitalization, Other)
  Sender: FDA-Public Use
  Company Number: PHHY2014AE059251

PATIENT
  Sex: Male

DRUGS (5)
  1. MYFORTIC [Suspect]
     Indication: RENAL TRANSPLANT
     Dosage: UNK UKN, UNK
  2. CORTICOSTEROIDS [Suspect]
     Dosage: UNK UKN, UNK
  3. TACROLIMUS [Interacting]
     Dosage: UNK UKN, UNK
  4. ANTIFUNGAL DRUGS [Interacting]
     Dosage: UNK UKN, UNK
  5. ACE INHIBITORS [Suspect]
     Dosage: UNK UKN, UNK

REACTIONS (5)
  - Nephropathy toxic [Unknown]
  - Muscular weakness [Unknown]
  - Asthenia [Unknown]
  - Diabetes mellitus [Unknown]
  - Drug interaction [None]
